FAERS Safety Report 9469929 (Version 1)
Quarter: 2013Q3

REPORT INFORMATION
  Report Type: Spontaneous
  Country: US (occurrence: None)
  Receive Date: 20130820
  Receipt Date: 20130820
  Transmission Date: 20140515
  Serious: Yes (Hospitalization)
  Sender: FDA-Public Use
  Company Number: None

PATIENT
  Age: 62 Year
  Sex: Male
  Weight: 139.2 kg

DRUGS (2)
  1. CARVEDILOL [Suspect]
     Indication: CARDIAC FAILURE CONGESTIVE
     Route: 048
     Dates: start: 20130401, end: 20130402
  2. CARVEDILOL [Suspect]
     Route: 048
     Dates: start: 20130401, end: 20130402

REACTIONS (1)
  - Oedema [None]
